FAERS Safety Report 9115513 (Version 1)
Quarter: 2013Q1

REPORT INFORMATION
  Report Type: Spontaneous
  Country: US (occurrence: US)
  Receive Date: 20130225
  Receipt Date: 20130225
  Transmission Date: 20140127
  Serious: No
  Sender: FDA-Public Use
  Company Number: US-ENDO PHARMACEUTICALS INC.-FORT20120166

PATIENT
  Age: 58 None
  Sex: Male
  Weight: 85.81 kg

DRUGS (3)
  1. FORTESTA [Suspect]
     Indication: PRODUCT USED FOR UNKNOWN INDICATION
     Route: 061
     Dates: start: 20120722, end: 2012
  2. FORTESTA [Suspect]
     Route: 061
     Dates: start: 201206, end: 20120719
  3. FORTESTA [Suspect]
     Route: 061
     Dates: start: 2012

REACTIONS (3)
  - Application site exfoliation [Not Recovered/Not Resolved]
  - Application site erythema [Not Recovered/Not Resolved]
  - Application site irritation [Not Recovered/Not Resolved]
